FAERS Safety Report 23319813 (Version 1)
Quarter: 2023Q4

REPORT INFORMATION
  Report Type: Spontaneous
  Country: GB (occurrence: GB)
  Receive Date: 20231220
  Receipt Date: 20231220
  Transmission Date: 20240109
  Serious: Yes (Hospitalization)
  Sender: FDA-Public Use
  Company Number: None

PATIENT
  Age: 68 Year
  Sex: Female

DRUGS (1)
  1. OXYBUTYNIN [Suspect]
     Active Substance: OXYBUTYNIN
     Indication: Product used for unknown indication

REACTIONS (3)
  - Illness [Unknown]
  - Loss of consciousness [Unknown]
  - Syncope [Unknown]
